FAERS Safety Report 17499474 (Version 1)
Quarter: 2020Q1

REPORT INFORMATION
  Report Type: Spontaneous
  Country: ES (occurrence: ES)
  Receive Date: 20200305
  Receipt Date: 20200305
  Transmission Date: 20200409
  Serious: Yes (Hospitalization)
  Sender: FDA-Public Use
  Company Number: ES-ACCORD-174870

PATIENT
  Age: 72 Year
  Sex: Female

DRUGS (12)
  1. ATENOLOL/ATENOLOL HYDROCHLORIDE [Concomitant]
     Active Substance: ATENOLOL HYDROCHLORIDE
  2. ATORVASTATIN [Concomitant]
     Active Substance: ATORVASTATIN
  3. PIOGLITAZONE/PIOGLITAZONE HYDROCHLORIDE [Suspect]
     Active Substance: PIOGLITAZONE HYDROCHLORIDE
     Indication: DIABETES MELLITUS
     Dates: start: 20190513, end: 20200217
  4. LANTUS [Concomitant]
     Active Substance: INSULIN GLARGINE
  5. REPAGLINIDE. [Concomitant]
     Active Substance: REPAGLINIDE
  6. LORAZEPAM. [Concomitant]
     Active Substance: LORAZEPAM
  7. LORMETAZEPAM [Concomitant]
     Active Substance: LORMETAZEPAM
  8. FEBUXOSTAT. [Concomitant]
     Active Substance: FEBUXOSTAT
  9. CALCIFEDIOL [Concomitant]
     Active Substance: CALCIFEDIOL
  10. OMEPRAZOLE. [Concomitant]
     Active Substance: OMEPRAZOLE
  11. LOSARTAN. [Concomitant]
     Active Substance: LOSARTAN
  12. ACETYLSALICYLIC ACID [Concomitant]
     Active Substance: ASPIRIN

REACTIONS (1)
  - Bladder neoplasm [Unknown]

NARRATIVE: CASE EVENT DATE: 20200210
